FAERS Safety Report 16874661 (Version 2)
Quarter: 2019Q4

REPORT INFORMATION
  Report Type: Spontaneous
  Country: US (occurrence: US)
  Receive Date: 20191001
  Receipt Date: 20191009
  Transmission Date: 20200122
  Serious: Yes (Death, Other)
  Sender: FDA-Public Use
  Company Number: US-TEVA-2019-US-1115564

PATIENT
  Sex: Male

DRUGS (3)
  1. FENTANYL. [Suspect]
     Active Substance: FENTANYL
     Route: 065
  2. VICODIN [Suspect]
     Active Substance: ACETAMINOPHEN\HYDROCODONE BITARTRATE
     Route: 065
  3. OXYCONTIN [Suspect]
     Active Substance: OXYCODONE HYDROCHLORIDE
     Indication: ANALGESIC THERAPY
     Route: 065

REACTIONS (4)
  - Overdose [Fatal]
  - Hepatic failure [Unknown]
  - Drug dependence [Fatal]
  - Drug abuse [Fatal]
